FAERS Safety Report 8140125-0 (Version None)
Quarter: 2012Q1

REPORT INFORMATION
  Report Type: 
  Country: None (occurrence: None)
  Receive Date: 20120216
  Receipt Date: 20120207
  Transmission Date: 20120608
  Serious: Yes (Death)
  Sender: FDA-Public Use
  Company Number: US-BIOGENIDEC-2012BI002959

PATIENT
  Age: 55 Year
  Sex: Male

DRUGS (17)
  1. DEXEDRINE [Concomitant]
  2. NEURONTIN [Concomitant]
  3. MACROBID [Concomitant]
  4. ELAVIL [Concomitant]
  5. WELLBUTRIN [Concomitant]
  6. CIALIS [Concomitant]
  7. KLONOPIN [Concomitant]
  8. LIPITOR [Concomitant]
  9. TESTOSTERONE CYPIONATE [Concomitant]
  10. MOTRIN [Concomitant]
  11. PROVIGIL [Concomitant]
  12. BONIVA [Concomitant]
  13. RAPAFLO [Concomitant]
  14. ZANAFLEX [Concomitant]
  15. TYSABRI [Suspect]
     Indication: MULTIPLE SCLEROSIS
     Route: 042
     Dates: start: 20070831, end: 20111219
  16. BACLOFEN [Concomitant]
  17. TEGRETOL [Concomitant]

REACTIONS (1)
  - COMPLETED SUICIDE [None]
